FAERS Safety Report 25768795 (Version 4)
Quarter: 2025Q4

REPORT INFORMATION
  Report Type: Spontaneous
  Country: JP (occurrence: JP)
  Receive Date: 20250905
  Receipt Date: 20251205
  Transmission Date: 20260117
  Serious: Yes (Other)
  Sender: INSUD PHARMA
  Company Number: JP-EXELTIS PHARMACEUTICAL HOLDING, S.L.-2508JP07288

PATIENT
  Age: 23 Year
  Sex: Female

DRUGS (3)
  1. DROSPIRENONE [Suspect]
     Active Substance: DROSPIRENONE
     Indication: Dysmenorrhoea
     Dosage: 1 DOSAGE FORM, QD
     Route: 048
     Dates: start: 20250702, end: 20250820
  2. DROSPIRENONE [Suspect]
     Active Substance: DROSPIRENONE
     Indication: Dry skin
     Dosage: 1 DOSAGE FORM, QD
     Route: 048
     Dates: start: 20250825
  3. DROSPIRENONE [Suspect]
     Active Substance: DROSPIRENONE
     Indication: Premenstrual syndrome

REACTIONS (3)
  - Facial paralysis [Recovered/Resolved]
  - Asthenia [Recovered/Resolved]
  - Product use in unapproved indication [Unknown]

NARRATIVE: CASE EVENT DATE: 20250820
